FAERS Safety Report 7009770-X (Version None)
Quarter: 2010Q3

REPORT INFORMATION
  Report Type: 
  Country: None (occurrence: None)
  Receive Date: 20100903
  Receipt Date: 20090708
  Transmission Date: 20110219
  Serious: No
  Sender: FDA-Public Use
  Company Number: 2009-00388

PATIENT
  Age: 57 Year
  Sex: Male
  Weight: 112.4921 kg

DRUGS (11)
  1. ZICAM COLD REMEDY GEL SWABS [Suspect]
     Indication: NASOPHARYNGITIS
  2. JANUMET [Concomitant]
  3. LISINOPRIL [Concomitant]
  4. MELOXICAM [Concomitant]
  5. GLYBURIDE [Concomitant]
  6. LIPITOR [Concomitant]
  7. TERAZOSIN HCL [Concomitant]
  8. WALMUCIL (WALGREENS FIBER) [Concomitant]
  9. MULTI-VITAMINS [Concomitant]
  10. SLOW FE [Concomitant]
  11. ASPIRIN [Concomitant]

REACTIONS (1)
  - ANOSMIA [None]
